FAERS Safety Report 7151043-9 (Version None)
Quarter: 2010Q4

REPORT INFORMATION
  Report Type: 
  Country: None (occurrence: None)
  Receive Date: 20101210
  Receipt Date: 20070223
  Transmission Date: 20110411
  Serious: Yes (Hospitalization)
  Sender: FDA-Public Use
  Company Number: B0688179A

PATIENT

DRUGS (1)
  1. DILATREND [Suspect]
     Indication: PRODUCT USED FOR UNKNOWN INDICATION
     Dosage: 3.125MG PER DAY
     Route: 065

REACTIONS (1)
  - URINARY TRACT DISORDER [None]
